FAERS Safety Report 5612874-7 (Version None)
Quarter: 2008Q1

REPORT INFORMATION
  Report Type: 
  Country: None (occurrence: None)
  Receive Date: 20080204
  Receipt Date: 20080123
  Transmission Date: 20080703
  Serious: Yes (Other)
  Sender: FDA-Public Use
  Company Number: BR-PFIZER INC-2008007880

PATIENT
  Age: 20 Year
  Sex: Male

DRUGS (1)
  1. SILDENAFIL (PAH) [Suspect]
     Indication: PULMONARY HYPERTENSION
     Dosage: TEXT:25MG TID EVERYDAY TDD:75MG
     Route: 048

REACTIONS (1)
  - PULMONARY HYPERTENSION [None]
